FAERS Safety Report 16236064 (Version 1)
Quarter: 2019Q2

REPORT INFORMATION
  Report Type: Report from Study
  Country: US (occurrence: US)
  Receive Date: 20190425
  Receipt Date: 20190425
  Transmission Date: 20190711
  Serious: Yes (Death)
  Sender: FDA-Public Use
  Company Number: US-INGENUS PHARMACEUTICALS, LLC-2019INF000004

PATIENT

DRUGS (4)
  1. CETUXIMAB. [Suspect]
     Active Substance: CETUXIMAB
     Dosage: 250 MILLIGRAM/SQ. METER
     Route: 042
  2. DASATINIB. [Suspect]
     Active Substance: DASATINIB
     Indication: NEOPLASM
     Dosage: 70 MILLIGRAM, BID
     Route: 048
  3. GEMCITABINE HYDROCHLORIDE. [Suspect]
     Active Substance: GEMCITABINE HYDROCHLORIDE
     Indication: NEOPLASM
     Dosage: 1000 MILLIGRAM/SQ. METER, 1 TIMES A WEEK
     Route: 042
  4. CETUXIMAB. [Suspect]
     Active Substance: CETUXIMAB
     Indication: NEOPLASM
     Dosage: FIRST DOSE WILL BE A LOADING DOSE OF 400 MILLIGRAM/SQ. METER DAY 1 CYCLE 1 ONLY. REMAINDER DOSE 250
     Route: 042

REACTIONS (1)
  - Pneumonitis [Fatal]
